FAERS Safety Report 7252250-7 (Version None)
Quarter: 2011Q1

REPORT INFORMATION
  Report Type: 
  Country: None (occurrence: None)
  Receive Date: 20110129
  Receipt Date: 20100427
  Transmission Date: 20110831
  Serious: No
  Sender: FDA-Public Use
  Company Number: US-ABBOTT-09P-163-0606141-00

PATIENT
  Sex: Male
  Weight: 86.26 kg

DRUGS (4)
  1. HUMIRA [Suspect]
     Indication: CROHN'S DISEASE
     Dosage: 160MG; DAY 1
     Dates: start: 20090821, end: 20090821
  2. HUMIRA [Suspect]
     Dosage: DAY 15; 80MG
  3. HUMIRA [Suspect]
     Dates: start: 20100427
  4. HUMIRA [Suspect]
     Dosage: DAY 29
     Dates: start: 20091201, end: 20100427

REACTIONS (2)
  - PAIN [None]
  - DRUG INEFFECTIVE [None]
